FAERS Safety Report 6300491-5 (Version None)
Quarter: 2009Q3

REPORT INFORMATION
  Report Type: 
  Country: None (occurrence: None)
  Receive Date: 20090803
  Receipt Date: 20090723
  Transmission Date: 20100115
  Serious: Yes (Other)
  Sender: FDA-Public Use
  Company Number: GXKR2009JP07487

PATIENT
  Age: 69 Year
  Sex: Female

DRUGS (2)
  1. CARBOPLATIN [Suspect]
     Indication: OVARIAN CANCER
     Dosage: 737 MG, IV INFUSION
     Dates: start: 20090616, end: 20090616
  2. PACLITAXEL [Concomitant]

REACTIONS (5)
  - ARRHYTHMIA [None]
  - BLOOD PRESSURE DECREASED [None]
  - CHEST PAIN [None]
  - HEART RATE DECREASED [None]
  - HYPERHIDROSIS [None]
